FAERS Safety Report 7515164-0 (Version None)
Quarter: 2011Q2

REPORT INFORMATION
  Report Type: 
  Country: None (occurrence: None)
  Receive Date: 20110601
  Receipt Date: 20100507
  Transmission Date: 20111010
  Serious: No
  Sender: FDA-Public Use
  Company Number: US-PFIZER INC-2010059003

PATIENT
  Sex: Male
  Weight: 71.655 kg

DRUGS (6)
  1. FLUCONAZOLE [Concomitant]
     Dosage: 800 MG, UNK
  2. CHANTIX [Suspect]
     Indication: SMOKING CESSATION THERAPY
     Dosage: 1 MG, 2X/DAY
     Route: 048
     Dates: start: 20100419
  3. NORVIR [Concomitant]
     Dosage: 100 MG, UNK
  4. BACTRIM [Concomitant]
     Dosage: UNK
  5. TRUVADA [Concomitant]
     Dosage: UNK
  6. PREZISTA [Concomitant]
     Dosage: 600 MG, UNK

REACTIONS (1)
  - CONTUSION [None]
